FAERS Safety Report 10682615 (Version 1)
Quarter: 2014Q4

REPORT INFORMATION
  Report Type: Spontaneous
  Country: US (occurrence: None)
  Receive Date: 20141224
  Receipt Date: 20141224
  Transmission Date: 20150529
  Serious: Yes (Hospitalization)
  Sender: FDA-Public Use
  Company Number: FK201406325

PATIENT
  Age: 22 Year
  Sex: Female

DRUGS (8)
  1. EPINEPHRINE. [Suspect]
     Active Substance: EPINEPHRINE
     Indication: EPIDURAL ANAESTHESIA
     Dosage: 2 ML, L3-L4 INTERSPACE
  2. DEXAMETHASONE SODIUM PHOSPHATE. [Suspect]
     Active Substance: DEXAMETHASONE SODIUM PHOSPHATE
     Indication: EPIDURAL ANAESTHESIA
     Dosage: 7 MG, ONCE, L3-L4 INTERSPACE
  3. MIDAZOLAM [Concomitant]
     Active Substance: MIDAZOLAM\MIDAZOLAM HYDROCHLORIDE
  4. KETAMINE [Concomitant]
     Active Substance: KETAMINE
  5. PROPOFOL. [Concomitant]
     Active Substance: PROPOFOL
  6. FENTANYL. [Concomitant]
     Active Substance: FENTANYL
  7. BUPIVACAINE [Suspect]
     Active Substance: BUPIVACAINE
     Indication: EPIDURAL ANAESTHESIA
     Dosage: 20 ML, L3-L4 INTERSPACE
  8. KETOROLAC [Concomitant]
     Active Substance: KETOROLAC\KETOROLAC TROMETHAMINE

REACTIONS (2)
  - Neuromuscular block prolonged [None]
  - Off label use [None]
